FAERS Safety Report 9004793 (Version 1)
Quarter: 2013Q1

REPORT INFORMATION
  Report Type: Spontaneous
  Country: US (occurrence: None)
  Receive Date: 20130107
  Receipt Date: 20130107
  Transmission Date: 20140127
  Serious: Yes (Hospitalization)
  Sender: FDA-Public Use
  Company Number: None

PATIENT
  Age: 60 Year
  Sex: Female
  Weight: 89.36 kg

DRUGS (2)
  1. VANCOMYCIN 1 GRAM HOSPIRA [Suspect]
     Route: 040
     Dates: start: 20121003, end: 20121012
  2. VANCOMYCIN 1 GRAM HOSPIRA [Suspect]
     Route: 040
     Dates: start: 20121003, end: 20121012

REACTIONS (2)
  - Drug hypersensitivity [None]
  - Rash generalised [None]
